FAERS Safety Report 18041841 (Version 2)
Quarter: 2020Q3

REPORT INFORMATION
  Report Type: Spontaneous
  Country: DE (occurrence: DE)
  Receive Date: 20200720
  Receipt Date: 20200929
  Transmission Date: 20201103
  Serious: Yes (Other)
  Sender: FDA-Public Use
  Company Number: DE-AMGEN-DEUSP2020113166

PATIENT
  Age: 34 Year
  Sex: Female

DRUGS (16)
  1. VINCRISTINE [Suspect]
     Active Substance: VINCRISTINE
     Indication: BURKITT^S LYMPHOMA STAGE IV
     Dosage: 2 MILLIGRAM ((ON DAY 2 PRENATAL PHASE, ON DAY 8 POSTNATAL PHASE)
     Route: 040
  2. PREDNISOLONE. [Suspect]
     Active Substance: PREDNISOLONE
     Indication: BURKITT^S LYMPHOMA STAGE IV
     Dosage: 100 MILLIGRAM (ON DAYS 2?5 PRENATAL PHASE)
     Route: 048
  3. ETOPOSIDE. [Suspect]
     Active Substance: ETOPOSIDE
     Indication: BURKITT^S LYMPHOMA STAGE IV
     Dosage: 100 MILLIGRAM/SQ. METER (OVER 1 HOUR ON DAYS 2?4 PRENATAL, ON DAYS 11 ?12 POSTNATAL)
     Route: 042
  4. DEXAMETHASONE. [Suspect]
     Active Substance: DEXAMETHASONE
     Indication: BURKITT^S LYMPHOMA STAGE IV
     Dosage: 4 MILLIGRAM (ON DAYS 2 AND 6)
     Route: 037
  5. CYTARABINE. [Suspect]
     Active Substance: CYTARABINE
     Dosage: 40 MILLIGRAM, Q3WK (ON DAYS 2 AND 6)
     Route: 037
  6. CYCLOPHOSPHAMIDE. [Suspect]
     Active Substance: CYCLOPHOSPHAMIDE
     Dosage: 750 MILLIGRAM/SQ. METER (ON DAYS 1?5 POST NATAL PHASE)
     Route: 042
  7. CYTARABINE. [Suspect]
     Active Substance: CYTARABINE
     Indication: BURKITT^S LYMPHOMA STAGE IV
     Dosage: 150 MILLIGRAM/SQ. METER, Q3WK (OVER 1 HOUR EVERY 12 HOURS ON DAYS 2?6 PRENATAL PHASE)
     Route: 042
  8. MESNA. [Suspect]
     Active Substance: MESNA
     Indication: BURKITT^S LYMPHOMA STAGE IV
     Dosage: 200 MILLIGRAM/SQ. METER (AT 0, 4, AND 8 HOURS AFTER CPA DAY 2)
     Route: 042
  9. RITUXIMAB. [Suspect]
     Active Substance: RITUXIMAB
     Indication: BURKITT^S LYMPHOMA STAGE IV
     Dosage: 375 MILLIGRAM/SQ. METER (OVER 3 HOURS ON DAY 1 PRENATAL PHASE)
     Route: 042
  10. PREDNISOLONE. [Suspect]
     Active Substance: PREDNISOLONE
     Dosage: 60 MILLIGRAM/SQ. METER (ON DAYS 1?5 POSTNATAL PHASE)
     Route: 048
  11. RITUXIMAB. [Suspect]
     Active Substance: RITUXIMAB
     Dosage: 375 MILLIGRAM/SQ. METER (OVER 3 HOURS ON DAY 7 POST NATAL PHASE)
     Route: 042
  12. CYCLOPHOSPHAMIDE. [Suspect]
     Active Substance: CYCLOPHOSPHAMIDE
     Indication: BURKITT^S LYMPHOMA STAGE IV
     Dosage: 750 MILLIGRAM/SQ. METER (OVER 1 HOUR ON DAY 2 PRENATAL PHASE)
     Route: 042
  13. DOXORUBICIN [Suspect]
     Active Substance: DOXORUBICIN
     Indication: BURKITT^S LYMPHOMA STAGE IV
     Dosage: 50 MILLIGRAM/SQ. METER (OVER 30 MINUTES ON DAY 2)
     Route: 042
  14. CALCIUM LEUCOVORIN [Suspect]
     Active Substance: LEUCOVORIN CALCIUM
     Indication: BURKITT^S LYMPHOMA STAGE IV
     Dosage: 50 MILLIGRAM (EVERY 6 HOURS IF SERUFFL MTX LEVELS ARE)
     Route: 065
  15. FILGRASTIM [Suspect]
     Active Substance: FILGRASTIM
     Indication: PRODUCT USED FOR UNKNOWN INDICATION
     Dosage: 10 MICROGRAM/KILOGRAM, QD (ON DAYS 6?11)
     Route: 058
  16. MTX [METHOTREXATE] [Concomitant]
     Active Substance: METHOTREXATE SODIUM
     Dosage: 15 MILLIGRAM (ON DAYS 8 AND 12)
     Route: 037

REACTIONS (3)
  - Maternal exposure during pregnancy [Unknown]
  - Premature delivery [Unknown]
  - Amniotic fluid volume decreased [Not Recovered/Not Resolved]
